FAERS Safety Report 6675217-6 (Version None)
Quarter: 2010Q2

REPORT INFORMATION
  Report Type: 
  Country: None (occurrence: None)
  Receive Date: 20100409
  Receipt Date: 20100330
  Transmission Date: 20101027
  Serious: Yes (Other)
  Sender: FDA-Public Use
  Company Number: US-PFIZER INC-2009282539

PATIENT
  Sex: Female
  Weight: 52.154 kg

DRUGS (11)
  1. CHANTIX [Suspect]
     Indication: SMOKING CESSATION THERAPY
     Dosage: 0.5 MG, 1X/DAY
     Dates: start: 20090301
  2. CHANTIX [Suspect]
     Dosage: 1.0 MG, 2X/DAY
  3. CHANTIX [Suspect]
     Dosage: 1.0 MG, 1X/DAY
     Dates: start: 20090401
  4. OXYCODONE HCL AND ACETAMINOPHEN [Suspect]
     Indication: LIGAMENT INJURY
     Dosage: ONE EVERY 4 TO 6 HOURS
     Dates: start: 20100301
  5. OXYCODONE HCL AND ACETAMINOPHEN [Suspect]
     Indication: OSTEOARTHRITIS
  6. SPIRIVA [Concomitant]
     Indication: ASTHMA
     Dosage: UNK, DAILY
  7. ADVAIR DISKUS 100/50 [Concomitant]
     Dosage: UNK, 2X/DAY
  8. FISH OIL [Concomitant]
     Indication: CARDIOVASCULAR EVENT PROPHYLAXIS
  9. XOPENEX [Concomitant]
     Indication: DYSPNOEA
  10. MULTI-VITAMINS [Concomitant]
  11. WELLBUTRIN [Concomitant]

REACTIONS (10)
  - DELUSION [None]
  - DYSPNOEA [None]
  - HOSTILITY [None]
  - LIGAMENT INJURY [None]
  - LUNG DISORDER [None]
  - MEMORY IMPAIRMENT [None]
  - MOBILITY DECREASED [None]
  - OSTEOARTHRITIS [None]
  - RESPIRATORY RATE DECREASED [None]
  - SOMNAMBULISM [None]
